FAERS Safety Report 7392678-8 (Version None)
Quarter: 2011Q1

REPORT INFORMATION
  Report Type: 
  Country: None (occurrence: None)
  Receive Date: 20110330
  Receipt Date: 20110330
  Transmission Date: 20110831
  Serious: Yes (Hospitalization)
  Sender: FDA-Public Use
  Company Number: None

PATIENT
  Age: 47 Year
  Sex: Male
  Weight: 50 kg

DRUGS (2)
  1. BACTRIM [Suspect]
     Indication: CELLULITIS
     Dosage: 2 TAB BID PO
     Route: 048
     Dates: start: 20110211, end: 20110217
  2. KEFLEX [Suspect]
     Indication: CELLULITIS
     Dosage: 500 MG QID PO
     Route: 048
     Dates: start: 20110211, end: 20110217

REACTIONS (6)
  - CONDITION AGGRAVATED [None]
  - PYREXIA [None]
  - HEPATITIS [None]
  - RASH MORBILLIFORM [None]
  - ADVERSE DRUG REACTION [None]
  - INFECTION [None]
